FAERS Safety Report 23890857 (Version 3)
Quarter: 2024Q3

REPORT INFORMATION
  Report Type: Spontaneous
  Country: GB (occurrence: GB)
  Receive Date: 20240523
  Receipt Date: 20240801
  Transmission Date: 20241016
  Serious: Yes (Death, Other)
  Sender: NOVARTIS
  Company Number: GB-002147023-NVSC2024GB108280

PATIENT
  Age: 8 Year
  Sex: Male

DRUGS (2)
  1. KYMRIAH [Suspect]
     Active Substance: TISAGENLECLEUCEL
     Indication: Acute lymphocytic leukaemia
     Dosage: 1 DOSAGE FORM, ONCE/SINGLE
     Route: 042
     Dates: start: 201905, end: 201905
  2. TOCILIZUMAB [Concomitant]
     Active Substance: TOCILIZUMAB
     Indication: Product used for unknown indication
     Route: 065

REACTIONS (9)
  - Meningoencephalitis viral [Fatal]
  - Immune effector cell-associated neurotoxicity syndrome [Unknown]
  - Cytokine release syndrome [Unknown]
  - Seizure [Unknown]
  - Arnold-Chiari malformation [Unknown]
  - Immunoglobulins decreased [Unknown]
  - Asthenia [Unknown]
  - Dilatation ventricular [Unknown]
  - CSF white blood cell count decreased [Unknown]

NARRATIVE: CASE EVENT DATE: 20200701
